FAERS Safety Report 6984152-5 (Version None)
Quarter: 2010Q3

REPORT INFORMATION
  Report Type: 
  Country: None (occurrence: None)
  Receive Date: 20100915
  Receipt Date: 20090526
  Transmission Date: 20110219
  Serious: No
  Sender: FDA-Public Use
  Company Number: US-WYE-H09512509

PATIENT
  Age: 59 Year
  Sex: Female
  Weight: 68.1 kg

DRUGS (6)
  1. ADVIL LIQUI-GELS [Suspect]
     Indication: ARTHRITIS
     Dosage: 2 LIQUI-GELS AS NEEDED
     Route: 048
     Dates: start: 20080401
  2. XANAX [Concomitant]
  3. CONJUGATED ESTROGENS [Concomitant]
  4. LEXAPRO [Concomitant]
  5. BENICAR [Concomitant]
  6. NEXIUM [Concomitant]

REACTIONS (1)
  - DRUG SCREEN FALSE POSITIVE [None]
